FAERS Safety Report 9502567 (Version 1)
Quarter: 2013Q3

REPORT INFORMATION
  Report Type: Spontaneous
  Country: CH (occurrence: CH)
  Receive Date: 20130906
  Receipt Date: 20130906
  Transmission Date: 20140515
  Serious: Yes (Hospitalization, Other)
  Sender: FDA-Public Use
  Company Number: CH-JNJFOC-20130816223

PATIENT
  Age: 69 Year
  Sex: Female

DRUGS (7)
  1. STELARA [Suspect]
     Indication: PSORIASIS
     Route: 058
     Dates: start: 20130722, end: 20130722
  2. ATARAX [Concomitant]
     Route: 065
     Dates: start: 20130717, end: 20130726
  3. BECOZYM (NOS) [Concomitant]
     Route: 065
     Dates: start: 20130719, end: 20130727
  4. BENERVA [Concomitant]
     Route: 065
     Dates: start: 20130719, end: 20130727
  5. ZOMETA [Concomitant]
     Route: 065
     Dates: start: 20130718, end: 20130718
  6. DAFALGAN [Concomitant]
     Route: 065
     Dates: start: 20130720, end: 20130725
  7. NOVALGIN [Concomitant]
     Route: 065
     Dates: start: 20130719, end: 20130721

REACTIONS (4)
  - Sepsis [Recovered/Resolved]
  - Pneumonia pneumococcal [Recovered/Resolved]
  - Urinary tract infection [Recovered/Resolved]
  - Nervous system disorder [Unknown]
